FAERS Safety Report 7722483-1 (Version None)
Quarter: 2011Q3

REPORT INFORMATION
  Report Type: 
  Country: None (occurrence: None)
  Receive Date: 20110831
  Receipt Date: 20110826
  Transmission Date: 20111222
  Serious: Yes (Other)
  Sender: FDA-Public Use
  Company Number: US-PFIZER INC-2011178995

PATIENT
  Sex: Female

DRUGS (11)
  1. LYRICA [Suspect]
     Dosage: 50 MG, 3X/DAY
     Dates: start: 20110101, end: 20110101
  2. DIAZEPAM [Concomitant]
     Dosage: 5 MG, UNK
  3. PAXIL [Concomitant]
     Dosage: 10 MG, UNK
  4. SYMBICORT [Concomitant]
     Dosage: UNK
  5. ACETYLSALICYLIC ACID [Concomitant]
     Dosage: 81 MG, UNK
  6. METFORMIN [Concomitant]
     Dosage: 1000 MG, UNK
  7. LYRICA [Suspect]
     Indication: NEUROPATHY PERIPHERAL
     Dosage: 50 MG, 2X/DAY
  8. CALCIUM WITH VITAMIN D [Concomitant]
     Dosage: 600 + D
  9. ATENOLOL [Concomitant]
     Dosage: 100MG UNK
  10. SPIRIVA [Concomitant]
     Dosage: 18 MCG, UNK
  11. COLCHICINE [Concomitant]
     Dosage: 0.6 MG, UNK

REACTIONS (2)
  - GLOMERULAR FILTRATION RATE DECREASED [None]
  - RENAL IMPAIRMENT [None]
